FAERS Safety Report 13421340 (Version 1)
Quarter: 2017Q2

REPORT INFORMATION
  Report Type: Spontaneous
  Country: US (occurrence: US)
  Receive Date: 20170410
  Receipt Date: 20170410
  Transmission Date: 20170830
  Serious: No
  Sender: FDA-Public Use
  Company Number: US-BEH-2017079460

PATIENT
  Sex: Female

DRUGS (2)
  1. STIMATE [Suspect]
     Active Substance: DESMOPRESSIN ACETATE
     Indication: FACTOR VIII DEFICIENCY
     Dosage: 1.5 MG, PRN
     Route: 045
     Dates: start: 20170315
  2. STIMATE [Suspect]
     Active Substance: DESMOPRESSIN ACETATE
     Indication: MENORRHAGIA

REACTIONS (1)
  - Arthralgia [Unknown]
